FAERS Safety Report 9377650 (Version 1)
Quarter: 2013Q2

REPORT INFORMATION
  Report Type: Spontaneous
  Country: DK (occurrence: None)
  Receive Date: 20130625
  Receipt Date: 20130625
  Transmission Date: 20140414
  Serious: Yes (Other)
  Sender: FDA-Public Use
  Company Number: AUR-APL-2012-03782

PATIENT
  Age: 38 Year
  Sex: Female

DRUGS (4)
  1. FLUCONAZOLE [Suspect]
     Indication: VULVOVAGINAL CANDIDIASIS
     Dosage: 150 MG, TOTAL, PO
     Route: 048
  2. DOXYCYCLINE (DOXYCYCLINE) [Suspect]
  3. INTERFERON [Concomitant]
  4. DEXIBUPROFEN (DEXIBUPROFEN) [Concomitant]

REACTIONS (3)
  - Drug eruption [None]
  - Erythema multiforme [None]
  - Skin hyperpigmentation [None]
